FAERS Safety Report 25532657 (Version 1)
Quarter: 2025Q3

REPORT INFORMATION
  Report Type: Spontaneous
  Country: CN (occurrence: CN)
  Receive Date: 20250709
  Receipt Date: 20250709
  Transmission Date: 20251021
  Serious: Yes (Hospitalization)
  Sender: ASTELLAS
  Company Number: CN-ASTELLAS-2025-AER-036363

PATIENT
  Age: 78 Year
  Sex: Male
  Weight: 79 kg

DRUGS (1)
  1. XTANDI [Suspect]
     Active Substance: ENZALUTAMIDE
     Indication: Neoplasm malignant
     Route: 048
     Dates: start: 20250513, end: 20250519

REACTIONS (3)
  - Diarrhoea [Recovering/Resolving]
  - Pyrexia [Recovering/Resolving]
  - Underdose [Unknown]

NARRATIVE: CASE EVENT DATE: 20250513
